FAERS Safety Report 12902555 (Version 1)
Quarter: 2016Q4

REPORT INFORMATION
  Report Type: Spontaneous
  Country: US (occurrence: US)
  Receive Date: 20161102
  Receipt Date: 20161102
  Transmission Date: 20170207
  Serious: No
  Sender: FDA-Public Use
  Company Number: US-BEH-2016074824

PATIENT
  Age: 65 Year
  Sex: Female
  Weight: 54.42 kg

DRUGS (2)
  1. PRIVIGEN [Suspect]
     Active Substance: HUMAN IMMUNOGLOBULIN G
     Indication: IMMUNODEFICIENCY COMMON VARIABLE
     Dosage: 20 G, DAILY X5 DAYS Q3MT
     Route: 042
     Dates: start: 20120501
  2. METOPROLOL. [Concomitant]
     Active Substance: METOPROLOL
     Indication: HYPERTENSION
     Dosage: UNK, BID
     Route: 048

REACTIONS (2)
  - Blood pressure increased [Unknown]
  - Blood pressure increased [Unknown]

NARRATIVE: CASE EVENT DATE: 20161027
